FAERS Safety Report 12443073 (Version 1)
Quarter: 2016Q2

REPORT INFORMATION
  Report Type: Spontaneous
  Country: IL (occurrence: IL)
  Receive Date: 20160607
  Receipt Date: 20160607
  Transmission Date: 20160815
  Serious: Yes (Life-Threatening, Hospitalization)
  Sender: FDA-Public Use
  Company Number: IL-OTSUKA-2016_012525

PATIENT
  Age: 78 Year
  Sex: Male
  Weight: 93 kg

DRUGS (2)
  1. JNJ-56022473 [Suspect]
     Active Substance: INVESTIGATIONAL PRODUCT
     Indication: ACUTE MYELOID LEUKAEMIA
     Dosage: 837 MG, IN 2 WEEK
     Route: 042
     Dates: start: 20160522, end: 20160522
  2. DACOGEN [Suspect]
     Active Substance: DECITABINE
     Indication: ACUTE MYELOID LEUKAEMIA
     Dosage: 42 MG, 5 IN 1 CYCLICAL
     Route: 042
     Dates: start: 20160515

REACTIONS (12)
  - Asphyxia [None]
  - Hypotension [None]
  - Vomiting [None]
  - Syncope [Not Recovered/Not Resolved]
  - Chills [None]
  - Abdominal pain [None]
  - Hyperhidrosis [None]
  - Diarrhoea [None]
  - Aspiration [None]
  - Loss of consciousness [None]
  - Pulmonary congestion [None]
  - Infusion related reaction [None]

NARRATIVE: CASE EVENT DATE: 20160522
